FAERS Safety Report 17466408 (Version 2)
Quarter: 2020Q1

REPORT INFORMATION
  Report Type: Spontaneous
  Country: ES (occurrence: ES)
  Receive Date: 20200227
  Receipt Date: 20200304
  Transmission Date: 20200409
  Serious: Yes (Hospitalization)
  Sender: FDA-Public Use
  Company Number: ES-B.I. PHARMACEUTICALS,INC./RIDGEFIELD-2020-BI-010495

PATIENT
  Age: 86 Year
  Sex: Female

DRUGS (1)
  1. PRAXBIND [Suspect]
     Active Substance: IDARUCIZUMAB
     Indication: PROCOAGULANT THERAPY
     Route: 065
     Dates: start: 20200205, end: 20200205

REACTIONS (1)
  - Ischaemic stroke [Recovered/Resolved]

NARRATIVE: CASE EVENT DATE: 20200207
